FAERS Safety Report 5892748-7 (Version None)
Quarter: 2008Q3

REPORT INFORMATION
  Report Type: 
  Country: None (occurrence: None)
  Receive Date: 20080923
  Receipt Date: 20080912
  Transmission Date: 20090109
  Serious: Yes (Other)
  Sender: FDA-Public Use
  Company Number: NL-BAYER-200826490GPV

PATIENT
  Age: 0 Hour
  Sex: Male
  Weight: 1.75 kg

DRUGS (1)
  1. YASMIN [Suspect]
     Route: 064
     Dates: end: 20071101

REACTIONS (4)
  - BLOOD BILIRUBIN INCREASED [None]
  - CONGENITAL ABSENCE OF BILE DUCTS [None]
  - PREMATURE BABY [None]
  - YELLOW SKIN [None]
